FAERS Safety Report 10398365 (Version 2)
Quarter: 2014Q3

REPORT INFORMATION
  Report Type: Spontaneous
  Country: FR (occurrence: FR)
  Receive Date: 20140821
  Receipt Date: 20140821
  Transmission Date: 20150326
  Serious: Yes (Life-Threatening)
  Sender: FDA-Public Use
  Company Number: FR-JNJFOC-20110606277

PATIENT
  Age: 65 Year
  Sex: Female

DRUGS (6)
  1. KETUM [Suspect]
     Active Substance: KETOPROFEN
     Indication: NECK PAIN
     Route: 003
     Dates: start: 20110508, end: 20110509
  2. LEVOTHYROX [Concomitant]
     Active Substance: LEVOTHYROXINE
     Indication: HYPOTHYROIDISM
     Route: 048
  3. CEBUTID [Concomitant]
     Active Substance: FLURBIPROFEN
     Indication: ARTHRALGIA
     Route: 065
  4. DOLIPRANE [Concomitant]
     Active Substance: ACETAMINOPHEN
     Indication: ARTHRALGIA
     Route: 065
  5. ZALDIAR [Suspect]
     Active Substance: ACETAMINOPHEN\TRAMADOL HYDROCHLORIDE
     Indication: NECK PAIN
     Route: 048
     Dates: start: 20110508, end: 20110509
  6. MYOLASTAN [Suspect]
     Active Substance: TETRAZEPAM
     Indication: NECK PAIN
     Route: 048
     Dates: start: 20110508, end: 20110509

REACTIONS (6)
  - Polyarteritis nodosa [Recovered/Resolved]
  - Hypersensitivity vasculitis [Recovered/Resolved]
  - Pain in extremity [Recovered/Resolved]
  - Oedema mucosal [Recovered/Resolved]
  - Paraesthesia [Recovered/Resolved]
  - Purpura [Recovered/Resolved with Sequelae]

NARRATIVE: CASE EVENT DATE: 20110509
